FAERS Safety Report 7086867-X (Version None)
Quarter: 2010Q4

REPORT INFORMATION
  Report Type: 
  Country: None (occurrence: None)
  Receive Date: 20101105
  Receipt Date: 20101104
  Transmission Date: 20110411
  Serious: Yes (Hospitalization)
  Sender: FDA-Public Use
  Company Number: US-AMGEN-USASP2010003167

PATIENT

DRUGS (1)
  1. ENBREL [Suspect]
     Indication: RHEUMATOID ARTHRITIS
     Dosage: 25 MG, Q2WK

REACTIONS (5)
  - INFECTION [None]
  - INTESTINAL OBSTRUCTION [None]
  - LOCALISED INFECTION [None]
  - NASOPHARYNGITIS [None]
  - ORAL INFECTION [None]
